FAERS Safety Report 8452071-3 (Version None)
Quarter: 2012Q2

REPORT INFORMATION
  Report Type: 
  Country: None (occurrence: None)
  Receive Date: 20120620
  Receipt Date: 20120613
  Transmission Date: 20120825
  Serious: Yes (Other)
  Sender: FDA-Public Use
  Company Number: US-GLAXOSMITHKLINE-A0609362A

PATIENT
  Age: 45 Year
  Sex: Male

DRUGS (7)
  1. BETA BLOCKER [Concomitant]
     Indication: HYPERTENSION
  2. LAMICTAL [Suspect]
     Indication: EPILEPSY
     Dosage: 150MG PER DAY
     Route: 048
     Dates: start: 20000101
  3. ATENOLOL [Suspect]
     Indication: AORTIC DILATATION
     Dates: start: 20060401
  4. VIMPAT [Concomitant]
  5. CALCIUM CHANNEL BLOCKER [Concomitant]
     Indication: HYPERTENSION
  6. DILTIAZEM HYDROCHOLORIDE [Suspect]
     Indication: AORTIC DILATATION
  7. ADDITIVES [Suspect]

REACTIONS (18)
  - NAUSEA [None]
  - WITHDRAWAL SYNDROME [None]
  - DRUG INTERACTION [None]
  - BLINDNESS [None]
  - DIZZINESS [None]
  - ANXIETY [None]
  - SKIN CHAPPED [None]
  - DEPRESSION [None]
  - AURA [None]
  - AORTIC DILATATION [None]
  - IMPAIRED DRIVING ABILITY [None]
  - SKIN HAEMORRHAGE [None]
  - SKIN EXFOLIATION [None]
  - GRAND MAL CONVULSION [None]
  - STEVENS-JOHNSON SYNDROME [None]
  - AMNESIA [None]
  - ADVERSE DRUG REACTION [None]
  - INSOMNIA [None]
